FAERS Safety Report 6310075-0 (Version None)
Quarter: 2009Q3

REPORT INFORMATION
  Report Type: 
  Country: None (occurrence: None)
  Receive Date: 20090814
  Receipt Date: 20090803
  Transmission Date: 20100115
  Serious: Yes (Hospitalization, Other)
  Sender: FDA-Public Use
  Company Number: PHHY2009DE21871

PATIENT
  Sex: Female

DRUGS (3)
  1. VOLTAREN [Suspect]
     Indication: RADIUS FRACTURE
     Dosage: TWICE DAILY
     Route: 048
     Dates: start: 20090106, end: 20090228
  2. VOLTAREN [Suspect]
     Indication: POSTOPERATIVE CARE
     Dosage: ONCE DAILY
     Route: 048
     Dates: start: 20090301, end: 20090402
  3. ASPIRIN [Suspect]
     Indication: HEADACHE
     Dosage: 500 MG, BID
     Route: 048
     Dates: start: 20090406, end: 20090406

REACTIONS (5)
  - ASTHENIA [None]
  - BODY TEMPERATURE INCREASED [None]
  - HEADACHE [None]
  - PULMONARY HAEMORRHAGE [None]
  - SURGERY [None]
